FAERS Safety Report 23933531 (Version 2)
Quarter: 2024Q2

REPORT INFORMATION
  Report Type: Spontaneous
  Country: IN (occurrence: IN)
  Receive Date: 20240603
  Receipt Date: 20240604
  Transmission Date: 20240716
  Serious: Yes (Disabling)
  Sender: FDA-Public Use
  Company Number: IN-002147023-NVSC2024IN115006

PATIENT
  Sex: Female

DRUGS (1)
  1. BROLUCIZUMAB [Suspect]
     Active Substance: BROLUCIZUMAB
     Indication: Age-related macular degeneration
     Dosage: UNK
     Route: 031
     Dates: start: 20240217, end: 20240526

REACTIONS (1)
  - Retinal vasculitis [Unknown]

NARRATIVE: CASE EVENT DATE: 20240526
